FAERS Safety Report 5177858-4 (Version None)
Quarter: 2006Q4

REPORT INFORMATION
  Report Type: 
  Country: None (occurrence: None)
  Receive Date: 20061208
  Receipt Date: 20061127
  Transmission Date: 20070319
  Serious: Yes (Other)
  Sender: FDA-Public Use
  Company Number: 2006146435

PATIENT
  Age: 26 Year
  Sex: Female

DRUGS (2)
  1. HALCION [Suspect]
     Dosage: ORAL
     Route: 048
  2. ALL OTHER THERAPEUTIC PRODUCTS (ALL OTHER THERAPEUTIC PRODUCTS) [Suspect]

REACTIONS (3)
  - INCORRECT DOSE ADMINISTERED [None]
  - SOMNOLENCE [None]
  - SUICIDE ATTEMPT [None]
